FAERS Safety Report 4834333-1 (Version None)
Quarter: 2005Q4

REPORT INFORMATION
  Report Type: 
  Country: None (occurrence: None)
  Receive Date: 20051114
  Receipt Date: 20051103
  Transmission Date: 20060501
  Serious: Yes (Hospitalization, Other)
  Sender: FDA-Public Use
  Company Number: 2005151155

PATIENT
  Age: 56 Year
  Sex: Female

DRUGS (8)
  1. CELEBREX [Suspect]
     Indication: ARTHRALGIA
     Dosage: 200 MG (200 MG, 1 IN 1 D), ORAL
     Route: 048
  2. TIKOSYN [Suspect]
     Indication: ATRIAL FIBRILLATION
     Dosage: 1000 MCG (500 MCG, 2 IN 1 D), ORAL
     Route: 048
  3. ZYRTEC [Suspect]
     Indication: MULTIPLE ALLERGIES
     Dosage: ORAL
     Route: 048
  4. RANITIDINE HYDROCHLORIDE [Concomitant]
  5. GLUCOSAMINE WITH MSM (GLUCOSAMINE, METHYLSULFONYLMETHANE) [Concomitant]
  6. CALTRATE + D (CALCIUM CARBONATE, COLECALCIFEROL) [Concomitant]
  7. TOPROL (METOPROLOL) [Concomitant]
  8. LASIX [Concomitant]

REACTIONS (10)
  - ARTHRITIS [None]
  - ATRIAL FIBRILLATION [None]
  - CONDITION AGGRAVATED [None]
  - DIFFICULTY IN WALKING [None]
  - ECONOMIC PROBLEM [None]
  - MULTIPLE ALLERGIES [None]
  - NEPHROLITHIASIS [None]
  - PAIN [None]
  - PSORIASIS [None]
  - TREATMENT NONCOMPLIANCE [None]
